FAERS Safety Report 11383061 (Version 1)
Quarter: 2015Q3

REPORT INFORMATION
  Report Type: Spontaneous
  Country: BE (occurrence: BE)
  Receive Date: 20150814
  Receipt Date: 20150814
  Transmission Date: 20151125
  Serious: Yes (Life-Threatening, Other)
  Sender: FDA-Public Use
  Company Number: BE-BAYER-2015-394441

PATIENT
  Age: 20 Year

DRUGS (4)
  1. CEFTAZIDIME. [Concomitant]
     Active Substance: CEFTAZIDIME
     Dosage: UNK
  2. MOXIFLOXACIN ORAL [Suspect]
     Active Substance: MOXIFLOXACIN
     Dosage: UNK
  3. RIFAMPICIN [Concomitant]
     Active Substance: RIFAMPIN
  4. TOBRAMYCIN. [Concomitant]
     Active Substance: TOBRAMYCIN
     Dosage: UNK

REACTIONS (6)
  - Hepatocellular injury [Recovered/Resolved]
  - Renal impairment [Recovered/Resolved]
  - Hypergammaglobulinaemia [Recovered/Resolved]
  - Eosinophilia [Recovered/Resolved]
  - Coagulopathy [Recovered/Resolved]
  - Polyserositis [Recovered/Resolved]
